FAERS Safety Report 20326865 (Version 1)
Quarter: 2022Q1

REPORT INFORMATION
  Report Type: Spontaneous
  Country: US (occurrence: US)
  Receive Date: 20220112
  Receipt Date: 20220112
  Transmission Date: 20220423
  Serious: No
  Sender: FDA-Public Use
  Company Number: US-JNJFOC-20220109130

PATIENT
  Sex: Male

DRUGS (2)
  1. ERLEADA [Suspect]
     Active Substance: APALUTAMIDE
     Indication: Product used for unknown indication
     Route: 048
  2. CALCIUM [Suspect]
     Active Substance: CALCIUM
     Route: 065

REACTIONS (2)
  - Hyperhidrosis [Recovering/Resolving]
  - Chills [Recovering/Resolving]
